FAERS Safety Report 10728979 (Version 1)
Quarter: 2015Q1

REPORT INFORMATION
  Report Type: Spontaneous
  Country: US (occurrence: None)
  Receive Date: 20150120
  Receipt Date: 20150120
  Transmission Date: 20150721
  Serious: Yes (Hospitalization, Disabling, Other)
  Sender: FDA-Public Use
  Company Number: None

PATIENT
  Age: 65 Year
  Sex: Male
  Weight: 58.97 kg

DRUGS (1)
  1. GABAPENTIN. [Suspect]
     Active Substance: GABAPENTIN
     Indication: NEURALGIA
     Dates: start: 20140903

REACTIONS (15)
  - Mood altered [None]
  - Anger [None]
  - Factitious disorder [None]
  - Incoherent [None]
  - Dysuria [None]
  - Haematochezia [None]
  - Suspiciousness [None]
  - Amnesia [None]
  - Legal problem [None]
  - Vomiting [None]
  - Fall [None]
  - Aggression [None]
  - Withdrawal syndrome [None]
  - Dementia [None]
  - Delirium [None]

NARRATIVE: CASE EVENT DATE: 20141123
